FAERS Safety Report 12799981 (Version 3)
Quarter: 2017Q1

REPORT INFORMATION
  Report Type: Spontaneous
  Country: JP (occurrence: JP)
  Receive Date: 20160930
  Receipt Date: 20170105
  Transmission Date: 20170428
  Serious: Yes (Death)
  Sender: FDA-Public Use
  Company Number: JP-FRESENIUS KABI-FK201607298

PATIENT
  Sex: Female

DRUGS (7)
  1. VOLUVEN [Suspect]
     Active Substance: HYDROXYETHYL STARCH 130/0.4
     Indication: VEHICLE SOLUTION USE
     Route: 065
     Dates: start: 20160727
  2. FENTANYL. [Concomitant]
     Active Substance: FENTANYL
     Indication: SURGERY
     Dates: start: 20160727
  3. PROPOFOL. [Concomitant]
     Active Substance: PROPOFOL
  4. MANITOL [Concomitant]
  5. SEVOFLURANE. [Concomitant]
     Active Substance: SEVOFLURANE
  6. HEPARIN [Concomitant]
     Active Substance: HEPARIN SODIUM
  7. LACTEC [Concomitant]
     Active Substance: CALCIUM CHLORIDE ANHYDROUS\POTASSIUM CHLORIDE\SODIUM CHLORIDE\SODIUM LACTATE

REACTIONS (3)
  - Hypovolaemic shock [Fatal]
  - Off label use [Fatal]
  - Haematocrit decreased [Fatal]

NARRATIVE: CASE EVENT DATE: 20160728
